FAERS Safety Report 14079342 (Version 4)
Quarter: 2017Q4

REPORT INFORMATION
  Report Type: Spontaneous
  Country: AT (occurrence: AT)
  Receive Date: 20171012
  Receipt Date: 20171218
  Transmission Date: 20180321
  Serious: Yes (Disabling)
  Sender: FDA-Public Use
  Company Number: PHHY2017AT147420

PATIENT
  Age: 78 Year
  Sex: Male

DRUGS (3)
  1. REVOLADE [Suspect]
     Active Substance: ELTROMBOPAG
     Dosage: 50 MG, UNK
     Route: 065
     Dates: end: 201710
  2. LASIX [Concomitant]
     Active Substance: FUROSEMIDE
     Indication: IMMUNE THROMBOCYTOPENIC PURPURA
     Dosage: UNK
     Route: 065
  3. REVOLADE [Suspect]
     Active Substance: ELTROMBOPAG
     Indication: IMMUNE THROMBOCYTOPENIC PURPURA
     Dosage: 15 MG, UNK
     Route: 065
     Dates: start: 201603

REACTIONS (2)
  - Blindness unilateral [Unknown]
  - Retinal pigment epitheliopathy [Not Recovered/Not Resolved]
